FAERS Safety Report 7118398-2 (Version None)
Quarter: 2010Q4

REPORT INFORMATION
  Report Type: 
  Country: None (occurrence: None)
  Receive Date: 20101020
  Receipt Date: 20091130
  Transmission Date: 20110411
  Serious: Yes (Hospitalization)
  Sender: FDA-Public Use
  Company Number: WAES 0912USA00010

PATIENT
  Age: 71 Year
  Sex: Male
  Weight: 91.173 kg

DRUGS (2)
  1. MEVACOR [Suspect]
     Indication: BLOOD CHOLESTEROL
     Dosage: 10 MG/DAILY/PO
     Route: 048
     Dates: start: 20090814, end: 20090907
  2. FINASTERIDE [Concomitant]

REACTIONS (1)
  - MUSCULAR WEAKNESS [None]
